FAERS Safety Report 12468309 (Version 1)
Quarter: 2016Q2

REPORT INFORMATION
  Report Type: Spontaneous
  Country: US (occurrence: US)
  Receive Date: 20160615
  Receipt Date: 20160615
  Transmission Date: 20160815
  Serious: No
  Sender: FDA-Public Use
  Company Number: US-JUBILANT CADISTA PHARMACEUTICALS-2016JUB00005

PATIENT
  Sex: Female
  Weight: 55.78 kg

DRUGS (8)
  1. GABAPENTIN. [Concomitant]
     Active Substance: GABAPENTIN
     Dosage: 300 MG, 1X/DAY
  2. DIAZEPAM. [Concomitant]
     Active Substance: DIAZEPAM
     Dosage: 5 MG, AS NEEDED
  3. MULTIVITAMIN [Concomitant]
     Active Substance: VITAMINS
     Dosage: UNK
  4. TYLENOL [Concomitant]
     Active Substance: ACETAMINOPHEN
     Dosage: UNK, AS NEEDED
  5. XALATAN OPHTHALMIC SOLUTION [Concomitant]
     Dosage: UNK, 1X/DAY
  6. CYCLOBENZAPRINE HYDROCHLORIDE. [Suspect]
     Active Substance: CYCLOBENZAPRINE HYDROCHLORIDE
     Indication: MUSCLE SPASMS
     Dosage: 5 MG, UP TO 2X/DAY
     Route: 048
     Dates: start: 20151123
  7. VAGIFEM [Concomitant]
     Active Substance: ESTRADIOL
     Dosage: 10 MG, 2X/WEEK
  8. TIROSINT [Concomitant]
     Active Substance: LEVOTHYROXINE SODIUM
     Dosage: 88 ?G, UNK

REACTIONS (1)
  - Anti-transglutaminase antibody increased [Not Recovered/Not Resolved]
